FAERS Safety Report 23113365 (Version 24)
Quarter: 2024Q3

REPORT INFORMATION
  Report Type: Report from Study
  Country: JP (occurrence: JP)
  Receive Date: 20231027
  Receipt Date: 20240810
  Transmission Date: 20241017
  Serious: Yes (Other)
  Sender: JOHNSON AND JOHNSON
  Company Number: JP-JNJFOC-20231065510

PATIENT
  Age: 73 Year
  Sex: Male

DRUGS (22)
  1. ERLEADA [Suspect]
     Active Substance: APALUTAMIDE
     Indication: Prostate cancer
     Dosage: AFTER BREAKFAST
     Route: 048
     Dates: start: 20230727
  2. ERLEADA [Suspect]
     Active Substance: APALUTAMIDE
     Dosage: AFTER DINNER
     Route: 048
     Dates: start: 2023
  3. ERLEADA [Suspect]
     Active Substance: APALUTAMIDE
     Dosage: AFTER BREAKFAST
     Route: 048
     Dates: start: 2023
  4. ERLEADA [Suspect]
     Active Substance: APALUTAMIDE
     Dosage: AROUND 7 AM
     Route: 048
     Dates: start: 20230810, end: 20230810
  5. ERLEADA [Suspect]
     Active Substance: APALUTAMIDE
     Dosage: AFTER DINNER
     Route: 048
     Dates: start: 20230811, end: 202309
  6. ERLEADA [Suspect]
     Active Substance: APALUTAMIDE
     Dosage: AFTER DINNER
     Route: 048
     Dates: start: 202309, end: 20231002
  7. ERLEADA [Suspect]
     Active Substance: APALUTAMIDE
     Dosage: AFTER DINNER
     Route: 048
     Dates: start: 20231004
  8. ERLEADA [Suspect]
     Active Substance: APALUTAMIDE
     Dosage: AFTER DINNER
     Route: 048
     Dates: start: 202312
  9. ERLEADA [Suspect]
     Active Substance: APALUTAMIDE
     Dosage: AFTER DINNER
     Route: 048
  10. ERLEADA [Suspect]
     Active Substance: APALUTAMIDE
     Dosage: ONLY WHEN TAKING ORAL MEDICATION BETWEEN 10:00 AND 11:00 P.M.
     Route: 048
     Dates: start: 202405
  11. LEUPLIN [Suspect]
     Active Substance: LEUPROLIDE ACETATE
     Indication: Prostate cancer
     Dosage: DOSE UNKNOWN
     Route: 058
     Dates: start: 2023
  12. UNSPECIFIED INGREDIENT [Suspect]
     Active Substance: UNSPECIFIED INGREDIENT
     Indication: Dry skin prophylaxis
     Dosage: DOSE UNKNOWN
     Route: 061
     Dates: end: 20231027
  13. UNSPECIFIED INGREDIENT [Suspect]
     Active Substance: UNSPECIFIED INGREDIENT
     Indication: Pruritus
     Dosage: DOSE UNKNOWN
     Route: 061
     Dates: start: 202406
  14. UREA [Concomitant]
     Active Substance: UREA
     Indication: Dry skin
     Dosage: DOSE UNKNOWN
     Route: 061
  15. ENSURE [Concomitant]
     Active Substance: AMINO ACIDS\DEXTROSE\ELECTROLYTES NOS\SOYBEAN OIL\VITAMINS
     Indication: Nutritional supplementation
     Dosage: 3 DFS/DAY
     Route: 048
     Dates: start: 202308
  16. ENSURE [Concomitant]
     Active Substance: AMINO ACIDS\DEXTROSE\ELECTROLYTES NOS\SOYBEAN OIL\VITAMINS
     Dosage: 1 DF/DAY
     Route: 048
  17. ESOMEPRAZOLE MAGNESIUM [Concomitant]
     Active Substance: ESOMEPRAZOLE MAGNESIUM
     Indication: Gastrooesophageal reflux disease
     Dosage: DOSE UNKNOWN
     Route: 048
     Dates: start: 202308
  18. TOVIAZ [Concomitant]
     Active Substance: FESOTERODINE FUMARATE
     Indication: Urine output increased
     Dosage: DOSE UNKNOWN
     Route: 048
  19. BETAMETHASONE DIPROPIONATE [Concomitant]
     Active Substance: BETAMETHASONE DIPROPIONATE
     Indication: Skin irritation
     Dosage: DOSE UNKNOWN
     Route: 061
     Dates: start: 202311, end: 20231107
  20. UREA [Concomitant]
     Active Substance: UREA
     Indication: Skin irritation
     Dosage: DOSE UNKNOWN
     Route: 061
     Dates: start: 20231108
  21. UNSPECIFIED INGREDIENT [Concomitant]
     Active Substance: UNSPECIFIED INGREDIENT
     Indication: Product used for unknown indication
     Dosage: DOSE UNKNOWN
     Route: 065
     Dates: start: 20231002, end: 20231002
  22. LOXOPROFEN SODIUM [Concomitant]
     Active Substance: LOXOPROFEN SODIUM
     Indication: Pain
     Dosage: DOSE UNKNOWN
     Route: 048
     Dates: start: 202311

REACTIONS (71)
  - Deafness unilateral [Not Recovered/Not Resolved]
  - Lung disorder [Not Recovered/Not Resolved]
  - Arrhythmia [Not Recovered/Not Resolved]
  - Vomiting [Recovered/Resolved]
  - Decreased appetite [Not Recovered/Not Resolved]
  - Urine output increased [Recovering/Resolving]
  - Heat illness [Recovered/Resolved]
  - Pruritus [Not Recovered/Not Resolved]
  - Sensation of foreign body [Recovered/Resolved]
  - Nausea [Recovering/Resolving]
  - Eructation [Recovering/Resolving]
  - Weight decreased [Not Recovered/Not Resolved]
  - Gastrooesophageal reflux disease [Not Recovered/Not Resolved]
  - Diarrhoea [Recovering/Resolving]
  - Hyperhidrosis [Not Recovered/Not Resolved]
  - Faeces discoloured [Not Recovered/Not Resolved]
  - Dyspnoea [Recovering/Resolving]
  - Anxiety [Not Recovered/Not Resolved]
  - Eczema [Recovered/Resolved]
  - Pruritus [Not Recovered/Not Resolved]
  - Photodermatosis [Not Recovered/Not Resolved]
  - Cough [Recovered/Resolved]
  - Chest pain [Not Recovered/Not Resolved]
  - Skin laxity [Not Recovered/Not Resolved]
  - Musculoskeletal discomfort [Not Recovered/Not Resolved]
  - Taste disorder [Not Recovered/Not Resolved]
  - Skin irritation [Not Recovered/Not Resolved]
  - Dysphagia [Recovered/Resolved]
  - Hot flush [Not Recovered/Not Resolved]
  - Back pain [Recovered/Resolved]
  - Oropharyngeal discomfort [Not Recovered/Not Resolved]
  - Feeling hot [Not Recovered/Not Resolved]
  - Erythema [Not Recovered/Not Resolved]
  - Dry skin [Not Recovered/Not Resolved]
  - Insomnia [Not Recovered/Not Resolved]
  - Physical deconditioning [Not Recovered/Not Resolved]
  - Blood albumin decreased [Not Recovered/Not Resolved]
  - Glomerular filtration rate decreased [Not Recovered/Not Resolved]
  - Protein total decreased [Not Recovered/Not Resolved]
  - Haematocrit decreased [Not Recovered/Not Resolved]
  - Feeling hot [Not Recovered/Not Resolved]
  - Skin irritation [Recovered/Resolved]
  - Skin exfoliation [Not Recovered/Not Resolved]
  - Pelvic pain [Not Recovered/Not Resolved]
  - Hernia [Not Recovered/Not Resolved]
  - Groin pain [Not Recovered/Not Resolved]
  - Faeces hard [Not Recovered/Not Resolved]
  - Hernia pain [Not Recovered/Not Resolved]
  - Illness [Not Recovered/Not Resolved]
  - Cardiac disorder [Not Recovered/Not Resolved]
  - Headache [Not Recovered/Not Resolved]
  - Memory impairment [Not Recovered/Not Resolved]
  - Intertrigo [Not Recovered/Not Resolved]
  - Joint noise [Not Recovered/Not Resolved]
  - Pollakiuria [Recovering/Resolving]
  - Abdominal distension [Not Recovered/Not Resolved]
  - Tinnitus [Not Recovered/Not Resolved]
  - Red blood cell count decreased [Not Recovered/Not Resolved]
  - Haemoglobin decreased [Not Recovered/Not Resolved]
  - Prostatic specific antigen increased [Not Recovered/Not Resolved]
  - Urine output increased [Not Recovered/Not Resolved]
  - Lip erosion [Recovered/Resolved]
  - Oral mucosa erosion [Recovered/Resolved]
  - Varicose vein [Recovering/Resolving]
  - Pollakiuria [Not Recovered/Not Resolved]
  - Pain [Recovering/Resolving]
  - Rash [Recovering/Resolving]
  - Skin exfoliation [Not Recovered/Not Resolved]
  - Dehydration [Not Recovered/Not Resolved]
  - Product dose omission issue [Unknown]
  - Treatment noncompliance [Not Recovered/Not Resolved]

NARRATIVE: CASE EVENT DATE: 20230101
